FAERS Safety Report 7476008-9 (Version None)
Quarter: 2011Q2

REPORT INFORMATION
  Report Type: 
  Country: None (occurrence: None)
  Receive Date: 20110505
  Receipt Date: 20100518
  Transmission Date: 20111010
  Serious: Yes (Other)
  Sender: FDA-Public Use
  Company Number: 2010AP001042

PATIENT
  Age: 61 Year
  Sex: Male

DRUGS (6)
  1. CIPROFLOXACIN [Suspect]
     Indication: PRODUCT USED FOR UNKNOWN INDICATION
  2. VENLAFAXINE HCL [Suspect]
     Indication: PRODUCT USED FOR UNKNOWN INDICATION
     Dosage: 75 MG;BID ; 100 MG;BID
  3. OXYCODONE HCL [Concomitant]
  4. METHADONE HCL [Suspect]
     Indication: BACK PAIN
  5. HYDROMORPHONE HCL [Concomitant]
  6. METOCLOPRAMIDE [Concomitant]

REACTIONS (5)
  - DRUG INTERACTION [None]
  - ATAXIA [None]
  - FALL [None]
  - SEROTONIN SYNDROME [None]
  - DRUG SCREEN POSITIVE [None]
